FAERS Safety Report 6578095-9 (Version None)
Quarter: 2010Q1

REPORT INFORMATION
  Report Type: 
  Country: None (occurrence: None)
  Receive Date: 20100211
  Receipt Date: 20100205
  Transmission Date: 20100710
  Serious: Yes (Other)
  Sender: FDA-Public Use
  Company Number: US-PFIZER INC-2007096660

PATIENT
  Sex: Male
  Weight: 77.11 kg

DRUGS (11)
  1. CHANTIX [Suspect]
     Indication: SMOKING CESSATION THERAPY
     Dosage: UNK
     Dates: start: 20071001
  2. GABAPENTIN [Concomitant]
  3. TEGRETOL [Concomitant]
  4. LORAZEPAM [Concomitant]
  5. ZOLOFT [Concomitant]
  6. TENOFOVIR DISOPROXIL FUMARATE [Concomitant]
  7. SUSTIVA [Concomitant]
  8. EPZICOM [Concomitant]
  9. METFORMIN HYDROCHLORIDE [Concomitant]
  10. GEMFIBROZIL [Concomitant]
  11. METOCLOPRAMIDE [Concomitant]

REACTIONS (4)
  - DIARRHOEA [None]
  - FLATULENCE [None]
  - LOWER RESPIRATORY TRACT INFECTION [None]
  - WEIGHT INCREASED [None]
